FAERS Safety Report 4716784-9 (Version None)
Quarter: 2005Q3

REPORT INFORMATION
  Report Type: 
  Country: None (occurrence: None)
  Receive Date: 20050719
  Receipt Date: 20050223
  Transmission Date: 20060218
  Serious: Yes (Death, Other)
  Sender: FDA-Public Use
  Company Number: PHBS2005BE02993

PATIENT
  Age: 71 Year
  Sex: Male

DRUGS (27)
  1. VINCRISTINE + ADRIAMYCIN + DEXAMETHASONE [Concomitant]
     Dosage: UNK, UNK
     Dates: start: 20020701, end: 20030101
  2. CYCLOPHOSPHAMIDE [Concomitant]
     Route: 065
     Dates: start: 20040801
  3. BORTEZOMIB [Concomitant]
     Route: 065
     Dates: start: 20040901
  4. VINCRISTINE [Concomitant]
     Route: 065
     Dates: start: 20041201, end: 20050101
  5. EPIRUBICIN [Concomitant]
     Route: 065
     Dates: start: 20041201, end: 20050101
  6. DEXAMETHASONE [Concomitant]
     Dosage: UNK, UNK
     Route: 065
     Dates: start: 20040701, end: 20040801
  7. DEXAMETHASONE [Concomitant]
     Route: 065
     Dates: start: 20041201, end: 20050101
  8. FOLIC ACID [Concomitant]
     Route: 065
  9. NOOTROPIL [Concomitant]
     Route: 065
  10. EMCONCOR [Concomitant]
     Route: 065
  11. ASPIRIN [Concomitant]
     Route: 065
  12. PARIET [Concomitant]
     Route: 065
  13. BUMETANIDE [Concomitant]
     Route: 065
  14. TUSSIPECT [Concomitant]
     Route: 065
  15. THEBACON [Concomitant]
     Route: 065
  16. DUOVENT [Concomitant]
     Route: 065
  17. ARANESP [Concomitant]
     Route: 065
  18. ARANESP [Concomitant]
     Route: 065
  19. ZOMETA [Suspect]
     Indication: MULTIPLE MYELOMA
     Dosage: 4 MG, QMO
     Route: 042
     Dates: start: 20020901, end: 20050101
  20. AREDIA [Suspect]
     Indication: MULTIPLE MYELOMA
     Dosage: 60 MG, QMO
     Route: 042
     Dates: start: 20020701, end: 20020901
  21. BONE MARROW TRANSPLANT [Concomitant]
     Dosage: AUTOLOGOUS STEM CELL TRANSPLANT
     Route: 065
     Dates: start: 20030701
  22. ENDOXAN [Concomitant]
     Route: 065
     Dates: start: 20030116
  23. ENDOXAN [Concomitant]
     Route: 065
     Dates: start: 20040801
  24. MELPHALAN [Concomitant]
     Dosage: 50 %
     Route: 065
     Dates: start: 20030701
  25. PREDNISONE [Concomitant]
     Route: 065
     Dates: start: 20040301, end: 20040701
  26. VELCADE [Concomitant]
     Route: 065
     Dates: start: 20040901
  27. NATRIUMHYDROGENCARBONAT [Concomitant]

REACTIONS (11)
  - ASEPTIC NECROSIS BONE [None]
  - ATRIAL FIBRILLATION [None]
  - DEATH [None]
  - DENTAL CARIES [None]
  - HYPERCALCAEMIA [None]
  - MALIGNANT NEOPLASM PROGRESSION [None]
  - MUCOSAL EROSION [None]
  - OSTEOLYSIS [None]
  - OSTEOPENIA [None]
  - TOOTH EXTRACTION [None]
  - WOUND DEBRIDEMENT [None]
